FAERS Safety Report 7493008-3 (Version None)
Quarter: 2011Q2

REPORT INFORMATION
  Report Type: 
  Country: None (occurrence: None)
  Receive Date: 20110519
  Receipt Date: 20110519
  Transmission Date: 20111010
  Serious: Yes (Hospitalization)
  Sender: FDA-Public Use
  Company Number: None

PATIENT
  Age: 89 Year
  Sex: Male
  Weight: 71 kg

DRUGS (2)
  1. INSULIN [Suspect]
     Indication: TYPE 1 DIABETES MELLITUS
     Dosage: 30 UNITS AM SQ
     Route: 058
     Dates: start: 20071221, end: 20110516
  2. INSULIN [Suspect]
     Indication: TYPE 1 DIABETES MELLITUS
     Dosage: 10 UNITS TID SQ
     Route: 058
     Dates: start: 20061017, end: 20110516

REACTIONS (2)
  - HYPOGLYCAEMIA [None]
  - UNRESPONSIVE TO STIMULI [None]
